FAERS Safety Report 17397222 (Version 2)
Quarter: 2020Q2

REPORT INFORMATION
  Report Type: Spontaneous
  Country: GB (occurrence: GB)
  Receive Date: 20200210
  Receipt Date: 20200504
  Transmission Date: 20200713
  Serious: Yes (Other)
  Sender: FDA-Public Use
  Company Number: GB-ALLERGAN-2005524US

PATIENT
  Sex: Male
  Weight: 69.84 kg

DRUGS (2)
  1. TORUSOPT 20MG/ML [Concomitant]
     Dosage: UNK
  2. LUMIGAN [Suspect]
     Active Substance: BIMATOPROST
     Indication: GLAUCOMA
     Dosage: UNK
     Route: 047
     Dates: start: 201902

REACTIONS (3)
  - Cataract [Not Recovered/Not Resolved]
  - Nightmare [Not Recovered/Not Resolved]
  - Hyperhidrosis [Unknown]
